FAERS Safety Report 6961711-7 (Version None)
Quarter: 2010Q3

REPORT INFORMATION
  Report Type: 
  Country: None (occurrence: None)
  Receive Date: 20100901
  Receipt Date: 20100512
  Transmission Date: 20110219
  Serious: Yes (Hospitalization)
  Sender: FDA-Public Use
  Company Number: PHHY2010US30486

PATIENT
  Sex: Male

DRUGS (8)
  1. LOTENSIN [Suspect]
     Indication: BLOOD PRESSURE MANAGEMENT
     Dosage: UNK
  2. BIOTENE [Interacting]
     Indication: DENTAL CARE
     Dosage: UNK
  3. GLUCOSE OXIDASE [Interacting]
     Indication: DRY MOUTH
  4. COUMADIN [Interacting]
     Indication: ANTICOAGULANT THERAPY
     Dosage: PER DAY
     Route: 048
  5. CARDIZEM [Interacting]
     Indication: TACHYCARDIA
     Dosage: 180 MG, UNK
     Route: 048
  6. NEXIUM [Interacting]
     Indication: GASTROOESOPHAGEAL REFLUX DISEASE
     Dosage: 40 MG, UNK
     Route: 048
  7. ALLOPURINOL [Interacting]
     Indication: GOUT
     Dosage: 100 MG PER DAY
     Route: 048
  8. ASPIRIN [Interacting]
     Dosage: 81 MG PER DAY
     Route: 048

REACTIONS (7)
  - DIZZINESS [None]
  - DRUG INTERACTION [None]
  - DRY MOUTH [None]
  - MALAISE [None]
  - NAUSEA [None]
  - NERVOUSNESS [None]
  - TREMOR [None]
